FAERS Safety Report 20217163 (Version 1)
Quarter: 2021Q4

REPORT INFORMATION
  Report Type: Spontaneous
  Country: US (occurrence: US)
  Receive Date: 20211222
  Receipt Date: 20211222
  Transmission Date: 20220304
  Serious: Yes (Hospitalization)
  Sender: FDA-Public Use
  Company Number: US-PFIZER INC-202101755278

PATIENT
  Age: 50 Year
  Sex: Male

DRUGS (12)
  1. METHYLPREDNISOLONE [Suspect]
     Active Substance: METHYLPREDNISOLONE
     Indication: COVID-19
     Dosage: 32 MG
  2. METHYLPREDNISOLONE [Suspect]
     Active Substance: METHYLPREDNISOLONE
     Dosage: 64 UNK
  3. METHYLPREDNISOLONE [Suspect]
     Active Substance: METHYLPREDNISOLONE
     Dosage: ON 4TH DAY OF DISEASE
  4. METHYLPREDNISOLONE [Suspect]
     Active Substance: METHYLPREDNISOLONE
     Dosage: 100 UNK
  5. AZITHROMYCIN [Suspect]
     Active Substance: AZITHROMYCIN
     Indication: COVID-19
     Dosage: UNK
  6. LINEZOLID [Suspect]
     Active Substance: LINEZOLID
     Indication: COVID-19
     Dosage: 600 MG, 2X/DAY
  7. AMOXICILLIN\CLAVULANIC ACID [Suspect]
     Active Substance: AMOXICILLIN\CLAVULANIC ACID
     Indication: COVID-19
     Dosage: INITITATED AFTER FINISHING AZITHROMYCIN
  8. REMDESIVIR [Suspect]
     Active Substance: REMDESIVIR
     Indication: COVID-19
     Dosage: 200 MG
     Route: 042
  9. ENOXAPARIN [Suspect]
     Active Substance: ENOXAPARIN
     Dosage: 0.6 ML
  10. MOXIFLOXACIN [Suspect]
     Active Substance: MOXIFLOXACIN
     Indication: COVID-19
     Dosage: 400 MG
  11. COLISTIN [Suspect]
     Active Substance: COLISTIN
     Indication: COVID-19
     Dosage: UNK
  12. FOSFOMYCIN [Suspect]
     Active Substance: FOSFOMYCIN
     Indication: COVID-19
     Dosage: 8 G, 3X/DAY

REACTIONS (2)
  - Condition aggravated [Recovered/Resolved]
  - Off label use [Unknown]
